FAERS Safety Report 13131604 (Version 1)
Quarter: 2017Q1

REPORT INFORMATION
  Report Type: Spontaneous
  Country: GB (occurrence: GB)
  Receive Date: 20170119
  Receipt Date: 20170119
  Transmission Date: 20170428
  Serious: Yes (Hospitalization)
  Sender: FDA-Public Use
  Company Number: GB-IMPAX LABORATORIES, INC-2017-IPXL-00005

PATIENT
  Age: 33 Year
  Sex: Male

DRUGS (4)
  1. CHLOROQUINE PHOSPHATE. [Suspect]
     Active Substance: CHLOROQUINE PHOSPHATE
     Indication: MALARIA PROPHYLAXIS
     Dosage: 300 MG, 1 /WEEK
     Route: 065
  2. PROGUANIL HCL [Concomitant]
     Indication: MALARIA PROPHYLAXIS
     Dosage: 200 MG, DAILY
     Route: 065
  3. CHLOROQUINE PHOSPHATE. [Suspect]
     Active Substance: CHLOROQUINE PHOSPHATE
     Dosage: 300 MG, UNK
     Route: 065
  4. CHLOROQUINE PHOSPHATE. [Suspect]
     Active Substance: CHLOROQUINE PHOSPHATE
     Dosage: 600 MG, TAKEN BY ERROR
     Route: 065

REACTIONS (2)
  - Hypomania [Recovered/Resolved]
  - Medication error [Unknown]
